FAERS Safety Report 9586168 (Version 1)
Quarter: 2013Q4

REPORT INFORMATION
  Report Type: Report from Study
  Country: LB (occurrence: LB)
  Receive Date: 20131003
  Receipt Date: 20131003
  Transmission Date: 20140711
  Serious: Yes (Hospitalization)
  Sender: FDA-Public Use
  Company Number: LB-SA-2013SA096853

PATIENT
  Age: 60 Year
  Sex: Male

DRUGS (4)
  1. LANTUS SOLOSTAR [Suspect]
     Indication: DIABETES MELLITUS
     Dosage: DOSE: 20-30 UNITS DAILY
     Route: 058
     Dates: start: 201201, end: 201309
  2. AMARYL [Concomitant]
     Indication: DIABETES MELLITUS
     Route: 048
  3. DIAMERIL [Concomitant]
     Indication: DIABETES MELLITUS
     Route: 048
  4. SOLOSTAR [Concomitant]
     Dates: start: 201201, end: 201309

REACTIONS (2)
  - Syncope [Recovering/Resolving]
  - Hypoxia [Recovering/Resolving]
